FAERS Safety Report 14859351 (Version 1)
Quarter: 2018Q2

REPORT INFORMATION
  Report Type: Spontaneous
  Country: US (occurrence: US)
  Receive Date: 20180422
  Receipt Date: 20180422
  Transmission Date: 20180711
  Serious: No
  Sender: FDA-Public Use
  Company Number: None

PATIENT
  Age: 75 Year
  Sex: Male

DRUGS (1)
  1. PROMACTA [Suspect]
     Active Substance: ELTROMBOPAG OLAMINE

REACTIONS (4)
  - Cardiac operation [None]
  - Aortic valve repair [None]
  - Mitral valve repair [None]
  - Drug dose omission [None]

NARRATIVE: CASE EVENT DATE: 20180422
